FAERS Safety Report 5012859-8 (Version None)
Quarter: 2006Q2

REPORT INFORMATION
  Report Type: 
  Country: None (occurrence: None)
  Receive Date: 20060525
  Receipt Date: 20060525
  Transmission Date: 20061013
  Serious: No
  Sender: FDA-Public Use
  Company Number: None

PATIENT
  Sex: Male

DRUGS (1)
  1. TUBERSOL [Suspect]

REACTIONS (2)
  - ERYTHEMA [None]
  - SKIN WARM [None]
